FAERS Safety Report 17843371 (Version 1)
Quarter: 2020Q2

REPORT INFORMATION
  Report Type: Spontaneous
  Country: CA (occurrence: CA)
  Receive Date: 20200530
  Receipt Date: 20200530
  Transmission Date: 20200714
  Serious: Yes (Other)
  Sender: FDA-Public Use
  Company Number: CA-ROCHE-2606136

PATIENT
  Age: 52 Year
  Sex: Female

DRUGS (14)
  1. ACTEMRA [Suspect]
     Active Substance: TOCILIZUMAB
     Indication: VASCULITIS
     Route: 042
  2. MORPHINE SULFATE. [Suspect]
     Active Substance: MORPHINE SULFATE
     Indication: PRODUCT USED FOR UNKNOWN INDICATION
     Route: 065
  3. ALENDRONATE SODIUM. [Concomitant]
     Active Substance: ALENDRONATE SODIUM
  4. ASA [Concomitant]
     Active Substance: ASPIRIN
  5. SYNTHROID [Concomitant]
     Active Substance: LEVOTHYROXINE SODIUM
  6. WARFARIN [Concomitant]
     Active Substance: WARFARIN
  7. ACTEMRA [Suspect]
     Active Substance: TOCILIZUMAB
     Indication: POLYCHONDRITIS
     Dosage: THERAPY DURATION: 162.0 DAYS
     Route: 042
  8. MORPHINE SULFATE. [Concomitant]
     Active Substance: MORPHINE SULFATE
  9. VENLAFAXINE HYDROCHLORIDE. [Concomitant]
     Active Substance: VENLAFAXINE HYDROCHLORIDE
  10. ACTEMRA [Suspect]
     Active Substance: TOCILIZUMAB
     Indication: VASCULITIS
     Route: 058
  11. ZANTAC [Concomitant]
     Active Substance: RANITIDINE HYDROCHLORIDE
  12. PREDNISONE. [Concomitant]
     Active Substance: PREDNISONE
  13. CARVEDILOL. [Concomitant]
     Active Substance: CARVEDILOL
     Route: 065
  14. RAMIPRIL. [Concomitant]
     Active Substance: RAMIPRIL

REACTIONS (3)
  - Injection site reaction [Recovered/Resolved]
  - Drug hypersensitivity [Recovered/Resolved]
  - Gallbladder disorder [Recovered/Resolved]
